FAERS Safety Report 7383797-0 (Version None)
Quarter: 2011Q1

REPORT INFORMATION
  Report Type: 
  Country: None (occurrence: None)
  Receive Date: 20110330
  Receipt Date: 20110321
  Transmission Date: 20110831
  Serious: Yes (Hospitalization, Other)
  Sender: FDA-Public Use
  Company Number: US-AMGEN-USASP2011015346

PATIENT
  Age: 52 Year
  Sex: Male

DRUGS (1)
  1. ENBREL [Suspect]
     Indication: PSORIASIS
     Dosage: 50 MG, QWK
     Dates: start: 20040201

REACTIONS (6)
  - IMMUNODEFICIENCY COMMON VARIABLE [None]
  - CHEST PAIN [None]
  - GALLBLADDER DISORDER [None]
  - SPLENOMEGALY [None]
  - SINUSITIS [None]
  - CYSTITIS [None]
